FAERS Safety Report 5292628-4 (Version None)
Quarter: 2007Q2

REPORT INFORMATION
  Report Type: 
  Country: None (occurrence: None)
  Receive Date: 20070404
  Receipt Date: 20070320
  Transmission Date: 20071010
  Serious: Yes (Death)
  Sender: FDA-Public Use
  Company Number: S07-FRA-01424-01

PATIENT
  Age: 80 Year
  Sex: Male

DRUGS (10)
  1. EBIXA (MEMANTINE HYDROCHLORIDE) [Suspect]
  2. BISOPROLOL FUMARATE [Suspect]
  3. NOVONORM (REPAGLINIDE) [Suspect]
  4. MOPRAL (OMEPRAZOLE) [Concomitant]
  5. DIGOXIN [Concomitant]
  6. METFORMIN HCL [Concomitant]
  7. FUROSEMIDE [Concomitant]
  8. COZAAR [Concomitant]
  9. PREVISCAN (PENTOXIFYLLINE) [Concomitant]
  10. CIPROFIBRATE [Concomitant]

REACTIONS (1)
  - RETROPERITONEAL FIBROSIS [None]
